FAERS Safety Report 6286617-0 (Version None)
Quarter: 2009Q3

REPORT INFORMATION
  Report Type: 
  Country: None (occurrence: None)
  Receive Date: 20090727
  Receipt Date: 20090727
  Transmission Date: 20100115
  Serious: Yes (Death)
  Sender: FDA-Public Use
  Company Number: None

PATIENT
  Age: 69 Year
  Sex: Male
  Weight: 86.1834 kg

DRUGS (1)
  1. CHANTIX [Suspect]
     Indication: SMOKING CESSATION THERAPY
     Dosage: AS PRESCRIBED DAILY
     Dates: start: 20080101, end: 20090519

REACTIONS (3)
  - AGITATION [None]
  - COMPLETED SUICIDE [None]
  - IRRITABILITY [None]
